FAERS Safety Report 25412239 (Version 2)
Quarter: 2025Q2

REPORT INFORMATION
  Report Type: Spontaneous
  Country: US (occurrence: US)
  Receive Date: 20250609
  Receipt Date: 20250610
  Transmission Date: 20250717
  Serious: No
  Sender: PFIZER
  Company Number: US-PFIZER INC-202500113924

PATIENT
  Age: 77 Year
  Sex: Female

DRUGS (2)
  1. NURTEC ODT [Suspect]
     Active Substance: RIMEGEPANT SULFATE
     Indication: Migraine
     Dates: start: 202506
  2. LUNESTA [Concomitant]
     Active Substance: ESZOPICLONE
     Indication: Insomnia

REACTIONS (5)
  - Migraine [Unknown]
  - Insomnia [Unknown]
  - Dizziness [Unknown]
  - Gait disturbance [Unknown]
  - Hypoaesthesia [Unknown]
